FAERS Safety Report 8862889 (Version 1)
Quarter: 2012Q4

REPORT INFORMATION
  Report Type: 
  Country: US (occurrence: US)
  Receive Date: 20121026
  Receipt Date: 20121026
  Transmission Date: 20130627
  Serious: Yes (Other)
  Sender: FDA-Public Use
  Company Number: US-JNJFOC-20121011574

PATIENT
  Age: 47 Year
  Sex: Male

DRUGS (4)
  1. DOXORUBICIN [Suspect]
     Indication: SARCOMA
     Route: 042
  2. CYCLOPHOSPHAMIDE [Suspect]
     Indication: SARCOMA
     Route: 065
  3. VINCRISTINE [Suspect]
     Indication: SARCOMA
     Route: 065
  4. PREDNISONE [Suspect]
     Indication: SARCOMA
     Route: 065

REACTIONS (2)
  - Pleural haemorrhage [Unknown]
  - Off label use [Unknown]
